FAERS Safety Report 13350549 (Version 1)
Quarter: 2017Q1

REPORT INFORMATION
  Report Type: Spontaneous
  Country: GB (occurrence: GB)
  Receive Date: 20170320
  Receipt Date: 20170320
  Transmission Date: 20170429
  Serious: Yes (Life-Threatening)
  Sender: FDA-Public Use
  Company Number: GB-FRESENIUS KABI-FK201702167

PATIENT
  Age: 13 Year
  Sex: Female

DRUGS (18)
  1. PIRITON [Suspect]
     Active Substance: CHLORPHENIRAMINE MALEATE
     Indication: ADVERSE EVENT
     Route: 048
     Dates: start: 20170221
  2. PIRITON [Suspect]
     Active Substance: CHLORPHENIRAMINE MALEATE
     Route: 042
     Dates: start: 20170221
  3. TACROLIMUS. [Concomitant]
     Active Substance: TACROLIMUS
  4. HEPARIN [Suspect]
     Active Substance: HEPARIN SODIUM
     Indication: ANTICOAGULANT THERAPY
     Route: 010
  5. PREDNISOLONE. [Concomitant]
     Active Substance: PREDNISOLONE
  6. 0.9% SODIUM CHLORIDE [Suspect]
     Active Substance: SODIUM CHLORIDE
     Indication: DEVICE PRIMING
     Route: 010
     Dates: start: 20170221
  7. HYDROCORTISONE. [Suspect]
     Active Substance: HYDROCORTISONE
     Indication: ADVERSE EVENT
     Route: 042
     Dates: start: 20170221
  8. 0.9% SODIUM CHLORIDE [Suspect]
     Active Substance: SODIUM CHLORIDE
     Indication: HAEMODIALYSIS
     Route: 042
     Dates: start: 20170221
  9. ASPIRINE [Concomitant]
     Active Substance: ASPIRIN
  10. DARBEPOETIN ALFA [Concomitant]
     Active Substance: DARBEPOETIN ALFA
  11. NIFEDIPINE. [Suspect]
     Active Substance: NIFEDIPINE
     Indication: ADVERSE EVENT
     Route: 065
     Dates: start: 20170221
  12. CALCIUM ACETATE. [Concomitant]
     Active Substance: CALCIUM ACETATE
  13. KALETRA [Concomitant]
     Active Substance: LOPINAVIR\RITONAVIR
  14. CODEINE [Suspect]
     Active Substance: CODEINE
     Indication: ADVERSE EVENT
     Route: 065
     Dates: start: 20170221
  15. LAMIVUDINE. [Concomitant]
     Active Substance: LAMIVUDINE
  16. VENOFER [Concomitant]
     Active Substance: IRON SUCROSE
  17. ABACAVIR. [Concomitant]
     Active Substance: ABACAVIR
  18. ALFACALCIDOL [Concomitant]
     Active Substance: ALFACALCIDOL

REACTIONS (8)
  - Abdominal pain [Unknown]
  - Rash [Unknown]
  - Ocular hyperaemia [Unknown]
  - Haemodialysis complication [Unknown]
  - Swelling face [Unknown]
  - Blood pressure systolic increased [Unknown]
  - Haemolysis [Unknown]
  - Ocular icterus [Unknown]

NARRATIVE: CASE EVENT DATE: 20170221
